FAERS Safety Report 7903083-7 (Version None)
Quarter: 2011Q4

REPORT INFORMATION
  Report Type: 
  Country: None (occurrence: None)
  Receive Date: 20111107
  Receipt Date: 20111025
  Transmission Date: 20120403
  Serious: Yes (Hospitalization)
  Sender: FDA-Public Use
  Company Number: 1000025100

PATIENT
  Age: 86 Year
  Sex: Female

DRUGS (11)
  1. UNDEPRE (TRAZODONE HYDROCHLORIDE) [Suspect]
     Indication: BEHAVIOURAL AND PSYCHIATRIC SYMPTOMS OF DEMENTIA
     Dosage: 12.5 MG (12.5 MG,1 IN 1 D),ORAL; ) 25 MG (25 MG,1 IN 1 D),ORAL
     Route: 048
     Dates: start: 20110720, end: 20110727
  2. LIPITOR [Concomitant]
  3. MEMANTINE HYDROCHLORIDE [Suspect]
     Indication: DEMENTIA ALZHEIMER'S TYPE
     Dosage: 5 MG (5 MG, 1 IN 1 D),ORAL, 10 MG (10 MG, 1 IN 1 D),ORAL, 15 MG (15 MG, 1 IN 1 D),ORAL
     Route: 048
     Dates: start: 20110728, end: 20110804
  4. MEMANTINE HYDROCHLORIDE [Suspect]
     Indication: DEMENTIA ALZHEIMER'S TYPE
     Dosage: 5 MG (5 MG, 1 IN 1 D),ORAL, 10 MG (10 MG, 1 IN 1 D),ORAL, 15 MG (15 MG, 1 IN 1 D),ORAL
     Route: 048
     Dates: start: 20110819, end: 20110825
  5. MEMANTINE HYDROCHLORIDE [Suspect]
     Indication: DEMENTIA ALZHEIMER'S TYPE
     Dosage: 5 MG (5 MG, 1 IN 1 D),ORAL, 10 MG (10 MG, 1 IN 1 D),ORAL, 15 MG (15 MG, 1 IN 1 D),ORAL
     Route: 048
     Dates: start: 20110805, end: 20110818
  6. ADALAT (NIFEDIPINE)(NIFEDIPINE) [Concomitant]
  7. MEMANTINE HYDROCHLORIDE [Suspect]
     Indication: DEMENTIA ALZHEIMER'S TYPE
     Dosage: 20 MG (20 MG, 1 IN 1 D),ORAL; 10 MG (10 MG, 1 IN 1 D),ORAL
     Route: 048
     Dates: start: 20110826, end: 20111017
  8. MEMANTINE HYDROCHLORIDE [Suspect]
     Indication: DEMENTIA ALZHEIMER'S TYPE
     Dosage: 20 MG (20 MG, 1 IN 1 D),ORAL; 10 MG (10 MG, 1 IN 1 D),ORAL
     Route: 048
     Dates: start: 20111018
  9. DIOVAN [Concomitant]
  10. BUP-4 (PROPIVERINE HYDROCHLORIDE)(PROPIVERINE HYNPNRHTNR TDR) [Concomitant]
  11. YOKUKAN-SAN (HERBAL EXTRACT NOS)(HERBAL EXTRACT NOS) [Concomitant]

REACTIONS (5)
  - PYREXIA [None]
  - RED BLOOD CELL COUNT DECREASED [None]
  - OEDEMA PERIPHERAL [None]
  - PNEUMONIA [None]
  - BLOOD POTASSIUM DECREASED [None]
